FAERS Safety Report 7118825-0 (Version None)
Quarter: 2010Q4

REPORT INFORMATION
  Report Type: 
  Country: None (occurrence: None)
  Receive Date: 20101123
  Receipt Date: 20101021
  Transmission Date: 20110411
  Serious: No
  Sender: FDA-Public Use
  Company Number: US-KINGPHARMUSA00001-K201001314

PATIENT
  Sex: Female

DRUGS (3)
  1. FLECTOR [Suspect]
     Indication: INTERVERTEBRAL DISC PROTRUSION
     Dosage: 1 PATCH, QD
     Route: 061
     Dates: start: 20100901
  2. FLECTOR [Suspect]
     Indication: MUSCULOSKELETAL PAIN
  3. IBUPROFEN [Concomitant]
     Dosage: UNK
     Route: 048

REACTIONS (1)
  - POLYMENORRHOEA [None]
